FAERS Safety Report 24104901 (Version 2)
Quarter: 2024Q3

REPORT INFORMATION
  Report Type: Spontaneous
  Country: FR (occurrence: FR)
  Receive Date: 20240717
  Receipt Date: 20240812
  Transmission Date: 20241017
  Serious: No
  Sender: JOHNSON AND JOHNSON
  Company Number: FR-JNJFOC-20240666981

PATIENT
  Sex: Female

DRUGS (1)
  1. SIMPONI [Suspect]
     Active Substance: GOLIMUMAB
     Indication: Gastrointestinal disorder
     Dosage: STRENGTH:100.00 MG/ML
     Route: 058

REACTIONS (4)
  - Off label use [Unknown]
  - Off label use [Unknown]
  - Device defective [Unknown]
  - Device leakage [Unknown]
